FAERS Safety Report 4519787-2 (Version None)
Quarter: 2004Q4

REPORT INFORMATION
  Report Type: 
  Country: None (occurrence: None)
  Receive Date: 20041202
  Receipt Date: 20041202
  Transmission Date: 20050328
  Serious: Yes (Other)
  Sender: FDA-Public Use
  Company Number: None

PATIENT
  Age: 67 Year
  Sex: Female
  Weight: 97.977 kg

DRUGS (1)
  1. LASIX [Suspect]
     Dosage: 40 MG-PO I TID
     Route: 048

REACTIONS (1)
  - DRUG INEFFECTIVE [None]
